FAERS Safety Report 17306081 (Version 2)
Quarter: 2020Q1

REPORT INFORMATION
  Report Type: Spontaneous
  Country: US (occurrence: US)
  Receive Date: 20200123
  Receipt Date: 20200227
  Transmission Date: 20200409
  Serious: No
  Sender: FDA-Public Use
  Company Number: US-JNJFOC-20200128723

PATIENT
  Sex: Female
  Weight: 56.75 kg

DRUGS (3)
  1. PROZAC [Concomitant]
     Active Substance: FLUOXETINE HYDROCHLORIDE
     Indication: PRODUCT USED FOR UNKNOWN INDICATION
     Route: 065
     Dates: start: 201906
  2. MENS ROGAINE EXTRA STRENGTH [Suspect]
     Active Substance: MINOXIDIL
     Indication: ALOPECIA
     Dosage: USE THE DROPPER AND JUST FOLLOW THE INSTRUCTIONS. DROPS (1) MARK ON DROPPER.
     Route: 061
     Dates: start: 201909, end: 202001
  3. MENS ROGAINE EXTRA STRENGTH [Suspect]
     Active Substance: MINOXIDIL
     Route: 061

REACTIONS (6)
  - Application site exfoliation [Recovered/Resolved]
  - Application site dryness [Recovering/Resolving]
  - Wrong technique in product usage process [Unknown]
  - Intentional product misuse [Unknown]
  - Product use issue [Unknown]
  - Application site pruritus [Recovering/Resolving]

NARRATIVE: CASE EVENT DATE: 2019
